FAERS Safety Report 8872454 (Version 1)
Quarter: 2012Q4

REPORT INFORMATION
  Report Type: 
  Country: US (occurrence: US)
  Receive Date: 20121029
  Receipt Date: 20121029
  Transmission Date: 20130627
  Serious: No
  Sender: FDA-Public Use
  Company Number: US-B.I. PHARMACEUTICALS,INC./RIDGEFIELD-2012-BP-26388BP

PATIENT
  Age: 70 Year
  Sex: Female
  Weight: 59 kg

DRUGS (5)
  1. ZANTAC (RANITIDINE HYDROCHLORIDE) [Suspect]
     Indication: DYSPEPSIA
     Route: 048
     Dates: start: 20121010
  2. ZANTAC (RANITIDINE HYDROCHLORIDE) [Suspect]
     Dosage: 300 mg
     Route: 048
     Dates: start: 20121023
  3. SYNTHROID [Concomitant]
     Indication: HYPOTHYROIDISM
     Dosage: 100 mcg
     Route: 048
     Dates: start: 1960
  4. CLARITIN [Concomitant]
     Indication: HYPERSENSITIVITY
     Route: 048
     Dates: start: 20121010
  5. XANAX [Concomitant]
     Indication: ANXIETY
     Dosage: 3 mg
     Route: 048
     Dates: start: 1982

REACTIONS (4)
  - Abdominal discomfort [Recovered/Resolved]
  - Flatulence [Recovered/Resolved]
  - Abdominal pain upper [Recovered/Resolved]
  - Abdominal pain upper [Not Recovered/Not Resolved]
